FAERS Safety Report 10513846 (Version 2)
Quarter: 2014Q4

REPORT INFORMATION
  Report Type: Spontaneous
  Country: SE (occurrence: SE)
  Receive Date: 20141013
  Receipt Date: 20141201
  Transmission Date: 20150528
  Serious: Yes (Other)
  Sender: FDA-Public Use
  Company Number: SE-GLAXOSMITHKLINE-SE2014003578

PATIENT
  Sex: Male

DRUGS (3)
  1. NICORETTE [Suspect]
     Active Substance: NICOTINE
     Indication: TOBACCO ABUSE
     Route: 048
  2. NICORETTE [Concomitant]
     Active Substance: NICOTINE
     Indication: PRODUCT USED FOR UNKNOWN INDICATION
     Route: 048
  3. NICORETTE [Concomitant]
     Active Substance: NICOTINE
     Route: 048

REACTIONS (4)
  - Incorrect drug administration duration [Unknown]
  - Extra dose administered [Unknown]
  - Nicotine dependence [Unknown]
  - Capillary disorder [Unknown]
